FAERS Safety Report 9853425 (Version 1)
Quarter: 2014Q1

REPORT INFORMATION
  Report Type: Spontaneous
  Country: US (occurrence: US)
  Receive Date: 20140129
  Receipt Date: 20140129
  Transmission Date: 20141002
  Serious: Yes (Hospitalization, Other)
  Sender: FDA-Public Use
  Company Number: US-BAXTER-2014BAX003735

PATIENT
  Age: 77 Year
  Sex: Female

DRUGS (2)
  1. DIANEAL LOW CALCIUM [Suspect]
     Indication: RENAL FAILURE CHRONIC
     Route: 033
     Dates: start: 20131230, end: 20140122
  2. DIANEAL LOW CALCIUM [Suspect]
     Indication: RENAL FAILURE CHRONIC
     Route: 033
     Dates: start: 20131230, end: 20140122

REACTIONS (5)
  - Pericarditis [Recovering/Resolving]
  - Bronchitis [Recovering/Resolving]
  - Bladder disorder [Recovering/Resolving]
  - Ultrafiltration failure [Unknown]
  - Nephropathy toxic [Unknown]
